FAERS Safety Report 19575508 (Version 1)
Quarter: 2021Q3

REPORT INFORMATION
  Report Type: Spontaneous
  Country: US (occurrence: US)
  Receive Date: 20210716
  Receipt Date: 20210716
  Transmission Date: 20211014
  Serious: No
  Sender: FDA-Public Use
  Company Number: None

PATIENT
  Age: 45 Year
  Sex: Male

DRUGS (1)
  1. ENBREL [Suspect]
     Active Substance: ETANERCEPT
     Indication: PSORIATIC ARTHROPATHY
     Dosage: OTHER FREQUENCY:OTHER;?
     Route: 058
     Dates: start: 201910

REACTIONS (2)
  - Injection site bruising [None]
  - Lack of administration site rotation [None]

NARRATIVE: CASE EVENT DATE: 20210716
